FAERS Safety Report 9257531 (Version 2)
Quarter: 2014Q1

REPORT INFORMATION
  Report Type: Spontaneous
  Country: US (occurrence: None)
  Receive Date: 20121212
  Receipt Date: 20130314
  Transmission Date: 20141002
  Serious: No
  Sender: FDA-Public Use
  Company Number: 1208USA005477

PATIENT
  Age: 64 Year
  Sex: Male

DRUGS (3)
  1. PEGINTRON [Suspect]
     Indication: HEPATITIS C
     Dosage: REDIPEN
     Dates: start: 20120721, end: 20121217
  2. RIBAVIRIN [Suspect]
     Indication: HEPATITIS C
     Dates: start: 20120721, end: 2012
  3. VICTRELIS [Suspect]
     Indication: HEPATITIS C
     Dates: start: 20120825, end: 20121217

REACTIONS (10)
  - Pain in extremity [None]
  - Rash [None]
  - Pruritus [None]
  - Insomnia [None]
  - Dyspnoea [None]
  - Anxiety [None]
  - Dysgeusia [None]
  - Fatigue [None]
  - Anaemia [None]
  - Haemoglobin decreased [None]
